FAERS Safety Report 5209065-0 (Version None)
Quarter: 2007Q1

REPORT INFORMATION
  Report Type: 
  Country: None (occurrence: None)
  Receive Date: 20070111
  Receipt Date: 20061227
  Transmission Date: 20070707
  Serious: Yes (Death, Life-Threatening, Hospitalization)
  Sender: FDA-Public Use
  Company Number: DSA_29180_2007

PATIENT
  Age: 52 Year
  Sex: Female

DRUGS (13)
  1. TAVOR /00273201/ [Suspect]
     Indication: SCHIZOAFFECTIVE DISORDER
     Dosage: 2 MG Q DAY PO
     Route: 048
     Dates: start: 20020507, end: 20030514
  2. BELOC ZOK [Suspect]
     Dosage: 47.5 MG Q DAY PO
     Route: 048
     Dates: start: 20030227, end: 20030514
  3. DAPOTUM 5 [Suspect]
     Dosage: 10 MG Q DAY PO
     Route: 048
     Dates: start: 20030510, end: 20030514
  4. DAPOTUM 5 [Suspect]
     Dosage: 5 MG Q DAY PO
     Route: 048
     Dates: end: 20030509
  5. DICLOFENAC SODIUM [Suspect]
     Dosage: 100 MG Q DAY PO
     Route: 048
     Dates: start: 20030513, end: 20030514
  6. DYTIDE H [Suspect]
     Dosage: 37.5 MG Q DAY PO
     Route: 048
     Dates: start: 20030122, end: 20030514
  7. NORVASC [Suspect]
     Dosage: 5 MG Q DAY PO
     Route: 048
     Dates: start: 20030314, end: 20030514
  8. REMERGIL [Suspect]
     Dosage: 15 MG Q DAY PO
     Route: 048
     Dates: start: 20030512, end: 20030514
  9. RISPERDAL [Suspect]
     Indication: SCHIZOAFFECTIVE DISORDER
     Dosage: 4 MG Q DAY PO
     Route: 048
     Dates: start: 20030317, end: 20030514
  10. XIMOVAN [Concomitant]
  11. KALIUM-DURILES [Concomitant]
  12. AKINETON /00079502/ [Concomitant]
  13. PANTOZOL [Concomitant]

REACTIONS (3)
  - CIRCULATORY COLLAPSE [None]
  - HEART RATE INCREASED [None]
  - HYPOTENSION [None]
